FAERS Safety Report 7743684-2 (Version None)
Quarter: 2011Q3

REPORT INFORMATION
  Report Type: 
  Country: None (occurrence: None)
  Receive Date: 20110912
  Receipt Date: 20110831
  Transmission Date: 20111222
  Serious: No
  Sender: FDA-Public Use
  Company Number: US-ELI_LILLY_AND_COMPANY-US201108002771

PATIENT
  Sex: Male

DRUGS (3)
  1. HUMATROPE [Suspect]
     Dosage: UNK, UNKNOWN
     Route: 065
  2. ANDROGEL [Concomitant]
     Dosage: UNK, UNKNOWN
     Route: 065
  3. CORTEF [Concomitant]
     Dosage: UNK, UNKNOWN
     Route: 065

REACTIONS (16)
  - ADRENAL DISORDER [None]
  - MEMORY IMPAIRMENT [None]
  - DEMENTIA ALZHEIMER'S TYPE [None]
  - NERVOUSNESS [None]
  - BLOOD TESTOSTERONE DECREASED [None]
  - NIGHT SWEATS [None]
  - VISUAL ACUITY REDUCED [None]
  - CONFUSIONAL STATE [None]
  - HEADACHE [None]
  - HORMONE LEVEL ABNORMAL [None]
  - VISION BLURRED [None]
  - WRONG TECHNIQUE IN DRUG USAGE PROCESS [None]
  - PAIN IN EXTREMITY [None]
  - ARTHRITIS [None]
  - SPINAL COLUMN STENOSIS [None]
  - ARTHRALGIA [None]
